FAERS Safety Report 4925605-0 (Version None)
Quarter: 2006Q1

REPORT INFORMATION
  Report Type: 
  Country: None (occurrence: None)
  Receive Date: 20060228
  Receipt Date: 20050106
  Transmission Date: 20060701
  Serious: No
  Sender: FDA-Public Use
  Company Number: 19085

PATIENT
  Age: 28 Year
  Sex: Male
  Weight: 93.2 kg

DRUGS (3)
  1. LAMICTAL [Suspect]
     Indication: INTERMITTENT EXPLOSIVE DISORDER
     Dosage: 200MG AT NIGHT
     Route: 048
     Dates: start: 20030815
  2. WELLBUTRIN XL [Suspect]
     Indication: ATTENTION DEFICIT/HYPERACTIVITY DISORDER
     Dosage: 300MG IN THE MORNING
     Route: 048
     Dates: start: 20040326
  3. NO CONCURRENT MEDICATION [Concomitant]

REACTIONS (2)
  - SPERM COUNT DECREASED [None]
  - SPERMATOZOA PROGRESSIVE MOTILITY DECREASED [None]
